FAERS Safety Report 21452128 (Version 1)
Quarter: 2022Q4

REPORT INFORMATION
  Report Type: Spontaneous
  Country: DK (occurrence: DK)
  Receive Date: 20221013
  Receipt Date: 20221013
  Transmission Date: 20230113
  Serious: Yes (Hospitalization, Disabling)
  Sender: FDA-Public Use
  Company Number: None

PATIENT
  Age: 53 Year
  Sex: Male

DRUGS (1)
  1. TOPIRAMATE [Suspect]
     Active Substance: TOPIRAMATE
     Indication: Headache
     Dosage: STRENGTH: 50 MG
     Route: 048
     Dates: start: 201102, end: 202011

REACTIONS (6)
  - Groin pain [Recovered/Resolved]
  - Nephrolithiasis [Not Recovered/Not Resolved]
  - Renal impairment [Recovered/Resolved]
  - Micturition urgency [Recovered/Resolved]
  - Flank pain [Recovered/Resolved]
  - Dysuria [Recovered/Resolved]

NARRATIVE: CASE EVENT DATE: 20170301
